FAERS Safety Report 16411023 (Version 1)
Quarter: 2019Q3

REPORT INFORMATION
  Report Type: Spontaneous
  Country: US (occurrence: US)
  Receive Date: 20190609
  Receipt Date: 20190609
  Transmission Date: 20191004
  Serious: No
  Sender: FDA-Public Use
  Company Number: None

PATIENT
  Age: 45 Year
  Sex: Female

DRUGS (1)
  1. AJOVY [Suspect]
     Active Substance: FREMANEZUMAB-VFRM
     Indication: MIGRAINE PROPHYLAXIS
     Dates: start: 20190501, end: 20190531

REACTIONS (4)
  - Burning sensation [None]
  - Dizziness [None]
  - Neck pain [None]
  - Nausea [None]

NARRATIVE: CASE EVENT DATE: 20190501
